FAERS Safety Report 5948431-2 (Version None)
Quarter: 2008Q4

REPORT INFORMATION
  Report Type: 
  Country: None (occurrence: None)
  Receive Date: 20081110
  Receipt Date: 20081110
  Transmission Date: 20090506
  Serious: No
  Sender: FDA-Public Use
  Company Number: None

PATIENT
  Age: 25 Year
  Sex: Male
  Weight: 97.5234 kg

DRUGS (2)
  1. KLONOPIN [Suspect]
     Indication: ANXIETY
     Dosage: .025 .05 PRN PO, PRESENT SINCE LAST YEAR
     Route: 048
  2. TOPAMAX [Suspect]
     Indication: ANXIETY
     Dosage: .25 ONCE IN MORNING PO
     Route: 048

REACTIONS (2)
  - IMPAIRED DRIVING ABILITY [None]
  - ROAD TRAFFIC ACCIDENT [None]
